FAERS Safety Report 24077516 (Version 1)
Quarter: 2024Q3

REPORT INFORMATION
  Report Type: Report from Study
  Country: US (occurrence: US)
  Receive Date: 20240711
  Receipt Date: 20240711
  Transmission Date: 20241016
  Serious: Yes (Other)
  Sender: ABBVIE
  Company Number: US-JNJFOC-20240701284

PATIENT

DRUGS (3)
  1. IMBRUVICA [Suspect]
     Active Substance: IBRUTINIB
     Indication: Neoplasm malignant
     Route: 048
  2. VENETOCLAX [Interacting]
     Active Substance: VENETOCLAX
     Indication: Neoplasm malignant
     Route: 048
  3. DASATINIB [Interacting]
     Active Substance: DASATINIB
     Indication: Neoplasm malignant
     Route: 065

REACTIONS (4)
  - Drug interaction [Unknown]
  - Haemorrhage [Unknown]
  - Myelosuppression [Unknown]
  - Contusion [Unknown]
